FAERS Safety Report 7824701-8 (Version None)
Quarter: 2011Q4

REPORT INFORMATION
  Report Type: 
  Country: None (occurrence: None)
  Receive Date: 20111019
  Receipt Date: 20111010
  Transmission Date: 20120403
  Serious: Yes (Other)
  Sender: FDA-Public Use
  Company Number: PHHY2011DE61415

PATIENT
  Age: 55 Year
  Sex: Female

DRUGS (1)
  1. ZOLEDRONIC [Suspect]
     Indication: NON-HODGKIN'S LYMPHOMA
     Route: 042

REACTIONS (10)
  - SOFT TISSUE INFECTION [None]
  - ABSCESS JAW [None]
  - EXPOSED BONE IN JAW [None]
  - OSTEONECROSIS OF JAW [None]
  - HYPOAESTHESIA ORAL [None]
  - LIP PAIN [None]
  - OSTEOLYSIS [None]
  - IMPAIRED HEALING [None]
  - LIP SWELLING [None]
  - FISTULA DISCHARGE [None]
